FAERS Safety Report 8349945-0 (Version None)
Quarter: 2012Q2

REPORT INFORMATION
  Report Type: 
  Country: None (occurrence: None)
  Receive Date: 20120510
  Receipt Date: 20120501
  Transmission Date: 20120825
  Serious: Yes (Hospitalization)
  Sender: FDA-Public Use
  Company Number: JP-VERTEX PHARMACEUTICALS INC.-AE-2012-003626

PATIENT
  Age: 57 Year
  Sex: Female

DRUGS (52)
  1. PEG-INTRON [Concomitant]
     Dates: start: 20120322
  2. CLOBETASOL PROPIONATE [Concomitant]
     Route: 061
     Dates: start: 20120310, end: 20120310
  3. CLOBETASOL PROPIONATE [Concomitant]
     Route: 061
     Dates: start: 20120324, end: 20120324
  4. NERISONA [Concomitant]
     Route: 051
     Dates: start: 20120308, end: 20120308
  5. NERISONA [Concomitant]
     Route: 051
     Dates: start: 20120314, end: 20120314
  6. ZOLPIDEM [Concomitant]
     Route: 048
     Dates: start: 20120308, end: 20120309
  7. ZOLPIDEM [Concomitant]
     Route: 048
     Dates: start: 20120406, end: 20120429
  8. CLONAZEPAM [Concomitant]
     Route: 048
     Dates: start: 20120403, end: 20120411
  9. LASIX [Concomitant]
     Route: 048
     Dates: start: 20120423, end: 20120429
  10. PEG-INTRON [Concomitant]
     Indication: HEPATITIS C
     Route: 058
     Dates: start: 20120126, end: 20120126
  11. PROMACTA [Concomitant]
     Route: 048
     Dates: start: 20120301, end: 20120307
  12. FULMETA: OINTMENT [Concomitant]
     Route: 061
     Dates: start: 20120302, end: 20120302
  13. LANSOPRAZOLE [Concomitant]
     Route: 048
     Dates: start: 20120319, end: 20120321
  14. CLOBETASOL PROPIONATE [Concomitant]
     Route: 061
     Dates: start: 20120326, end: 20120326
  15. ZOLPIDEM [Concomitant]
     Route: 048
     Dates: start: 20120405, end: 20120405
  16. EKSALB [Concomitant]
     Route: 051
     Dates: start: 20120324, end: 20120324
  17. REBETOL [Concomitant]
     Route: 048
     Dates: start: 20120329
  18. AZUNOL [Concomitant]
     Route: 061
     Dates: start: 20120320, end: 20120320
  19. CLONAZEPAM [Concomitant]
     Route: 048
     Dates: start: 20120413, end: 20120429
  20. ACETAMINOPHEN [Concomitant]
     Route: 048
     Dates: start: 20120419, end: 20120428
  21. TELAVIC (TELAPREVIR) [Suspect]
     Route: 048
     Dates: start: 20120315, end: 20120419
  22. ALMARARL [Concomitant]
     Route: 048
     Dates: start: 20120412, end: 20120429
  23. PEG-INTRON [Concomitant]
     Route: 058
     Dates: start: 20120202
  24. REBETOL [Concomitant]
     Indication: HEPATITIS C
     Route: 048
     Dates: start: 20120126, end: 20120201
  25. MOTILIUM [Concomitant]
     Route: 048
     Dates: start: 20120301, end: 20120321
  26. FULMETA: OINTMENT [Concomitant]
     Route: 061
     Dates: start: 20120318, end: 20120318
  27. CLOBETASOL PROPIONATE [Concomitant]
     Route: 061
     Dates: start: 20120309, end: 20120309
  28. KINDAVATE [Concomitant]
     Route: 061
     Dates: start: 20120308, end: 20120308
  29. NERISONA [Concomitant]
     Route: 051
     Dates: start: 20120311, end: 20120311
  30. PEG-INTRON [Concomitant]
     Route: 058
     Dates: start: 20120308, end: 20120308
  31. REBETOL [Concomitant]
     Route: 048
     Dates: start: 20120202, end: 20120312
  32. REBETOL [Concomitant]
     Route: 048
     Dates: start: 20120315, end: 20120328
  33. LANSOPRAZOLE [Concomitant]
     Route: 048
     Dates: start: 20120402, end: 20120425
  34. LANSOPRAZOLE [Concomitant]
     Route: 048
     Dates: start: 20120427, end: 20120429
  35. ATARAX [Concomitant]
     Route: 065
     Dates: start: 20120308, end: 20120315
  36. CLONAZEPAM [Concomitant]
     Route: 048
     Dates: start: 20120327, end: 20120402
  37. TELAVIC (TELAPREVIR) [Suspect]
     Indication: HEPATITIS C
     Route: 048
     Dates: start: 20120126, end: 20120314
  38. CLOBETASOL PROPIONATE [Concomitant]
     Route: 061
     Dates: start: 20120308, end: 20120308
  39. CLOBETASOL PROPIONATE [Concomitant]
     Route: 061
     Dates: start: 20120317, end: 20120317
  40. KENALOG [Concomitant]
     Route: 061
     Dates: start: 20120308, end: 20120308
  41. ZOLPIDEM [Concomitant]
     Route: 048
     Dates: start: 20120311, end: 20120404
  42. CYMBALTA [Concomitant]
     Route: 048
     Dates: start: 20120427, end: 20120429
  43. PEG-INTRON [Concomitant]
     Route: 058
     Dates: start: 20120315, end: 20120315
  44. TALION OD [Concomitant]
     Route: 048
     Dates: start: 20120302, end: 20120307
  45. LANSOPRAZOLE [Concomitant]
     Route: 048
     Dates: start: 20120308, end: 20120318
  46. LANSOPRAZOLE [Concomitant]
     Route: 048
     Dates: start: 20120322, end: 20120328
  47. LANSOPRAZOLE [Concomitant]
     Route: 048
     Dates: start: 20120329, end: 20120401
  48. CLOBETASOL PROPIONATE [Concomitant]
     Route: 061
     Dates: start: 20120314, end: 20120314
  49. CLOBETASOL PROPIONATE [Concomitant]
     Route: 061
     Dates: start: 20120321, end: 20120321
  50. KINDAVATE [Concomitant]
     Route: 061
     Dates: start: 20120314, end: 20120314
  51. AZUNOL 5 P [Concomitant]
     Route: 048
     Dates: start: 20120309, end: 20120309
  52. CLONAZEPAM [Concomitant]
     Route: 048
     Dates: start: 20120412, end: 20120412

REACTIONS (1)
  - TOXIC SKIN ERUPTION [None]
